FAERS Safety Report 19145965 (Version 2)
Quarter: 2021Q2

REPORT INFORMATION
  Report Type: Spontaneous
  Country: AT (occurrence: AT)
  Receive Date: 20210416
  Receipt Date: 20210430
  Transmission Date: 20210717
  Serious: Yes (Disabling, Other)
  Sender: FDA-Public Use
  Company Number: AT-BAYER-2021-120932

PATIENT
  Age: 33 Year
  Sex: Female

DRUGS (1)
  1. AVELOX [Suspect]
     Active Substance: MOXIFLOXACIN HYDROCHLORIDE

REACTIONS (10)
  - Tendonitis [None]
  - Cardiac disorder [None]
  - Labelled drug-disease interaction medication error [None]
  - Adverse drug reaction [None]
  - Arthralgia [None]
  - Off label use [None]
  - Musculoskeletal stiffness [None]
  - Gait disturbance [None]
  - Tendon injury [None]
  - Product use issue [None]
